FAERS Safety Report 11831721 (Version 1)
Quarter: 2015Q4

REPORT INFORMATION
  Report Type: Spontaneous
  Country: CH (occurrence: CH)
  Receive Date: 20151214
  Receipt Date: 20151214
  Transmission Date: 20160305
  Serious: Yes (Other)
  Sender: FDA-Public Use
  Company Number: CH-ELI_LILLY_AND_COMPANY-CH201512001460

PATIENT
  Age: 0 Year
  Sex: Female
  Weight: 2.22 kg

DRUGS (8)
  1. ZYPREXA [Suspect]
     Active Substance: OLANZAPINE
     Indication: BIPOLAR DISORDER
     Dosage: 10 MG, QD
     Route: 064
     Dates: start: 20150310
  2. ZYPREXA [Suspect]
     Active Substance: OLANZAPINE
     Dosage: 2.5 MG, QD
     Route: 065
  3. CIPRALEX [Suspect]
     Active Substance: ESCITALOPRAM OXALATE
     Indication: BIPOLAR DISORDER
     Dosage: 10 MG, QD
     Route: 064
     Dates: start: 2012, end: 201508
  4. TEGRETOL [Suspect]
     Active Substance: CARBAMAZEPINE
     Indication: BIPOLAR DISORDER
     Route: 064
     Dates: start: 2012, end: 20150310
  5. TEGRETOL [Suspect]
     Active Substance: CARBAMAZEPINE
     Indication: BIPOLAR DISORDER
     Route: 064
     Dates: start: 2012, end: 20150310
  6. ZYPREXA [Suspect]
     Active Substance: OLANZAPINE
     Indication: BIPOLAR DISORDER
     Dosage: 10 MG, QD
     Route: 064
     Dates: start: 20150310
  7. ZYPREXA [Suspect]
     Active Substance: OLANZAPINE
     Dosage: 2.5 MG, QD
     Route: 065
  8. CIPRALEX [Suspect]
     Active Substance: ESCITALOPRAM OXALATE
     Indication: BIPOLAR DISORDER
     Dosage: 10 MG, QD
     Route: 064
     Dates: start: 2012, end: 201508

REACTIONS (7)
  - Breech presentation [Unknown]
  - Foetal exposure during pregnancy [Recovered/Resolved]
  - False positive investigation result [Recovered/Resolved]
  - Petechiae [Unknown]
  - Hypoglycaemia neonatal [Recovered/Resolved]
  - Foetal growth restriction [Recovered/Resolved]
  - Alloimmunisation [Unknown]

NARRATIVE: CASE EVENT DATE: 20150302
